FAERS Safety Report 14676020 (Version 1)
Quarter: 2018Q1

REPORT INFORMATION
  Report Type: Report from Study
  Country: ES (occurrence: ES)
  Receive Date: 20180323
  Receipt Date: 20180323
  Transmission Date: 20180509
  Serious: Yes (Hospitalization)
  Sender: FDA-Public Use
  Company Number: ES-TEVA-2018-ES-870991

PATIENT
  Age: 68 Year
  Sex: Male

DRUGS (3)
  1. RAMIPRIL (2497A) [Interacting]
     Active Substance: RAMIPRIL
     Indication: HYPERTENSION
     Route: 048
     Dates: start: 20100901, end: 20160511
  2. ALDACTONE [Interacting]
     Active Substance: SPIRONOLACTONE
     Route: 048
     Dates: start: 20160401
  3. FUROSEMIDA (1615A) [Suspect]
     Active Substance: FUROSEMIDE
     Route: 048
     Dates: start: 20100201

REACTIONS (3)
  - Acute kidney injury [Recovered/Resolved]
  - Hyperkalaemia [Recovered/Resolved]
  - Drug interaction [Unknown]

NARRATIVE: CASE EVENT DATE: 20160511
